FAERS Safety Report 8120932-0 (Version None)
Quarter: 2012Q1

REPORT INFORMATION
  Report Type: 
  Country: None (occurrence: None)
  Receive Date: 20120208
  Receipt Date: 20120201
  Transmission Date: 20120608
  Serious: Yes (Life-Threatening, Other)
  Sender: FDA-Public Use
  Company Number: US-BAYER-2011-035551

PATIENT
  Age: 27 Year
  Sex: Female
  Weight: 122.45 kg

DRUGS (11)
  1. SYNTHROID [Concomitant]
     Dosage: 200 ?G, QD
     Route: 048
  2. CIPROFLOXACIN [Concomitant]
     Dosage: 500 MG, BID
     Route: 048
  3. YASMIN [Suspect]
     Dosage: UNK
     Dates: start: 20050101
  4. YASMIN [Suspect]
     Dosage: UNK
     Dates: start: 20070101, end: 20090101
  5. YASMIN [Suspect]
     Indication: ACNE
     Dosage: UNK
     Dates: start: 20040101
  6. CLARITIN [Concomitant]
     Dosage: UNK UNK, PRN
     Route: 048
  7. PROAIR HFA [Concomitant]
  8. YAZ [Suspect]
     Indication: ACNE
     Dosage: UNK
     Dates: start: 20050101, end: 20050101
  9. ALBUTEROL [Concomitant]
     Dosage: 90 ?G, UNK
     Route: 048
  10. BACTRIM [Concomitant]
     Route: 048
  11. SYNTHROID [Concomitant]
     Dosage: 75 ?G, QD
     Route: 048

REACTIONS (10)
  - PAIN [None]
  - PULMONARY EMBOLISM [None]
  - ASTHENIA [None]
  - INJURY [None]
  - FATIGUE [None]
  - ANHEDONIA [None]
  - THROMBOSIS [None]
  - GENERAL PHYSICAL HEALTH DETERIORATION [None]
  - ANXIETY [None]
  - PULMONARY FIBROSIS [None]
